FAERS Safety Report 4282196-8 (Version None)
Quarter: 2004Q1

REPORT INFORMATION
  Report Type: 
  Country: None (occurrence: None)
  Receive Date: 20040130
  Receipt Date: 20040119
  Transmission Date: 20041129
  Serious: Yes (Hospitalization)
  Sender: FDA-Public Use
  Company Number: DE-GLAXOSMITHKLINE-A0493825A

PATIENT
  Age: 69 Year
  Sex: Male

DRUGS (4)
  1. NAVELBINE [Suspect]
     Indication: NON-SMALL CELL LUNG CANCER
     Dosage: 60MGM2 SINGLE DOSE
     Route: 048
     Dates: start: 20031223
  2. CISPLATIN [Suspect]
     Indication: NON-SMALL CELL LUNG CANCER
     Dosage: 80MGM2 SINGLE DOSE
     Route: 042
     Dates: start: 20031223
  3. ISOSORBIDE MONONITRATE [Concomitant]
  4. NITROGLYCERIN [Concomitant]

REACTIONS (6)
  - DIZZINESS [None]
  - HYPERHIDROSIS [None]
  - NAUSEA [None]
  - RETROGRADE AMNESIA [None]
  - SKIN LACERATION [None]
  - SYNCOPE [None]
